FAERS Safety Report 16934724 (Version 3)
Quarter: 2022Q1

REPORT INFORMATION
  Report Type: Spontaneous
  Country: CA (occurrence: CA)
  Receive Date: 20191018
  Receipt Date: 20220119
  Transmission Date: 20220423
  Serious: Yes (Other)
  Sender: FDA-Public Use
  Company Number: CA-BECTON DICKINSON-2019BDN00365

PATIENT
  Age: 27 Year
  Sex: Female

DRUGS (17)
  1. CHLORHEXIDINE GLUCONATE\ISOPROPYL ALCOHOL [Suspect]
     Active Substance: CHLORHEXIDINE GLUCONATE\ISOPROPYL ALCOHOL
     Indication: Gingival hypertrophy
     Dosage: UNK UNK, UNK
     Route: 065
  2. ASPIRIN [Suspect]
     Active Substance: ASPIRIN
     Indication: Prophylaxis
     Dosage: UNK UNK, UNK
     Route: 065
  3. ASPIRIN [Suspect]
     Active Substance: ASPIRIN
     Indication: Product used for unknown indication
  4. DICLECTIN [Suspect]
     Active Substance: DOXYLAMINE SUCCINATE\PYRIDOXINE HYDROCHLORIDE
     Indication: Prophylaxis
     Dosage: UNK UNK, UNK
     Route: 048
  5. INSULIN NOS [Suspect]
     Active Substance: INSULIN NOS
     Indication: Type 2 diabetes mellitus
     Dosage: UNK UNK, UNK
     Route: 048
  6. INSULIN NOS [Suspect]
     Active Substance: INSULIN NOS
     Dosage: UNK UNK, UNK
     Route: 065
  7. METFORMIN [Suspect]
     Active Substance: METFORMIN HYDROCHLORIDE
     Indication: Type 2 diabetes mellitus
     Dosage: UNK UNK, UNK
     Route: 065
  8. METHYLDOPA [Suspect]
     Active Substance: METHYLDOPA
     Indication: Hypertension
     Dosage: UNK UNK, UNK
     Route: 048
  9. NIFEDIPINE [Suspect]
     Active Substance: NIFEDIPINE
     Indication: Hypertension
     Dosage: 20 MILLIGRAM, TID
     Route: 023
  10. NIFEDIPINE [Suspect]
     Active Substance: NIFEDIPINE
     Dosage: 20 MILLIGRAM, UNK
     Route: 065
  11. NIFEDIPINE [Suspect]
     Active Substance: NIFEDIPINE
     Dosage: 20 MILLIGRAM, QD
     Route: 065
  12. NIFEDIPINE [Suspect]
     Active Substance: NIFEDIPINE
     Dosage: 20 MILLIGRAM, BID
     Route: 065
  13. NIFEDIPINE [Suspect]
     Active Substance: NIFEDIPINE
     Dosage: 20 MILLIGRAM, UNK
     Route: 048
  14. NIFEDIPINE [Suspect]
     Active Substance: NIFEDIPINE
     Dosage: 60 MILLIGRAM, BID
     Route: 065
  15. SILDENAFIL [Suspect]
     Active Substance: SILDENAFIL
     Indication: Foetal growth restriction
     Dosage: 20 MILLIGRAM, TID
     Route: 065
  16. SILDENAFIL [Suspect]
     Active Substance: SILDENAFIL
     Dosage: 20 MILLIGRAM, QID
     Route: 048
  17. SILDENAFIL [Suspect]
     Active Substance: SILDENAFIL
     Dosage: 20 MILLIGRAM, BID
     Route: 065

REACTIONS (3)
  - Premature delivery [Not Recovered/Not Resolved]
  - Maternal exposure during pregnancy [Not Recovered/Not Resolved]
  - Off label use [Not Recovered/Not Resolved]
